FAERS Safety Report 21612229 (Version 3)
Quarter: 2023Q2

REPORT INFORMATION
  Report Type: Spontaneous
  Country: US (occurrence: US)
  Receive Date: 20221118
  Receipt Date: 20230607
  Transmission Date: 20230721
  Serious: Yes (Other)
  Sender: FDA-Public Use
  Company Number: US-GILEAD-2022-0605431

PATIENT
  Sex: Male

DRUGS (3)
  1. ATRIPLA [Suspect]
     Active Substance: EFAVIRENZ\EMTRICITABINE\TENOFOVIR DISOPROXIL FUMARATE
     Indication: HIV infection
     Dosage: UNK
     Route: 048
     Dates: start: 2006, end: 2013
  2. ATRIPLA [Suspect]
     Active Substance: EFAVIRENZ\EMTRICITABINE\TENOFOVIR DISOPROXIL FUMARATE
     Dosage: UNK
     Route: 048
     Dates: start: 200607, end: 2016
  3. ATRIPLA [Suspect]
     Active Substance: EFAVIRENZ\EMTRICITABINE\TENOFOVIR DISOPROXIL FUMARATE
     Dosage: UNK
     Route: 048
     Dates: start: 200607, end: 20160612

REACTIONS (4)
  - Chronic kidney disease [Unknown]
  - Chronic kidney disease [Not Recovered/Not Resolved]
  - Renal failure [Unknown]
  - Osteopenia [Unknown]

NARRATIVE: CASE EVENT DATE: 20090101
